FAERS Safety Report 9639331 (Version 1)
Quarter: 2013Q4

REPORT INFORMATION
  Report Type: Spontaneous
  Country: GB (occurrence: GB)
  Receive Date: 20131022
  Receipt Date: 20131022
  Transmission Date: 20140711
  Serious: Yes (Other)
  Sender: FDA-Public Use
  Company Number: PHHY2013GB115408

PATIENT
  Age: 8 Decade
  Sex: Female

DRUGS (1)
  1. CO-AMOXICLAV [Suspect]
     Dosage: 1200 MG (1000MG/200MG)
     Route: 042

REACTIONS (2)
  - Cardiac arrest [Unknown]
  - Rash [Unknown]
